FAERS Safety Report 7575430-X (Version None)
Quarter: 2011Q2

REPORT INFORMATION
  Report Type: 
  Country: None (occurrence: None)
  Receive Date: 20110627
  Receipt Date: 20110617
  Transmission Date: 20111010
  Serious: Yes (Death, Hospitalization)
  Sender: FDA-Public Use
  Company Number: JP-CELGENEUS-087-21880-10100908

PATIENT
  Sex: Female
  Weight: 42.8 kg

DRUGS (13)
  1. SULFAMETHOXAZOLE [Concomitant]
     Indication: PROPHYLAXIS
     Dosage: 1 TABLET
     Route: 048
     Dates: start: 20100310, end: 20101004
  2. DEXAMETHASONE [Suspect]
     Indication: MULTIPLE MYELOMA
     Dosage: 20 MILLIGRAM
     Route: 048
     Dates: start: 20100914, end: 20100928
  3. DIART [Concomitant]
     Indication: PROPHYLAXIS
     Dosage: 60 MILLIGRAM
     Route: 048
     Dates: start: 20100310, end: 20101004
  4. URSO 250 [Concomitant]
     Indication: PROPHYLAXIS
     Dosage: 600 MILLIGRAM
     Route: 048
     Dates: start: 20100310, end: 20101004
  5. REVLIMID [Suspect]
     Indication: MULTIPLE MYELOMA
     Dosage: 15 MILLIGRAM
     Route: 048
     Dates: start: 20100914, end: 20101004
  6. ALLOPURINOL [Concomitant]
     Indication: PROPHYLAXIS
     Dosage: 100 MILLIGRAM
     Route: 048
     Dates: start: 20100310, end: 20101004
  7. FOIPAN [Concomitant]
     Indication: PROPHYLAXIS
  8. LANSOPRAZOLE [Concomitant]
     Indication: PROPHYLAXIS
     Dosage: 15 MILLIGRAM
     Route: 048
     Dates: start: 20100310, end: 20101004
  9. PREDNISOLONE [Concomitant]
     Dosage: 1 MILLIGRAM
     Route: 048
     Dates: start: 20100310, end: 20101004
  10. BERIZYM [Concomitant]
     Indication: PROPHYLAXIS
     Dosage: 3 GRAM
     Route: 048
     Dates: start: 20100310, end: 20101004
  11. CYTOTEC [Concomitant]
     Indication: PROPHYLAXIS
     Dosage: 800 MICROGRAM
     Route: 048
     Dates: start: 20100310, end: 20101004
  12. LAXOBERON [Concomitant]
     Indication: CONSTIPATION
     Route: 048
     Dates: start: 20100310, end: 20101004
  13. FOIPAN [Concomitant]
     Dosage: 600 MILLIGRAM
     Route: 048
     Dates: start: 20100310, end: 20101004

REACTIONS (5)
  - PLATELET COUNT DECREASED [None]
  - UPPER GASTROINTESTINAL HAEMORRHAGE [None]
  - PLEURAL EFFUSION [None]
  - NEUTROPHIL COUNT DECREASED [None]
  - CARDIAC ARREST [None]
